FAERS Safety Report 9897181 (Version 4)
Quarter: 2015Q2

REPORT INFORMATION
  Report Type: Spontaneous
  Country: JP (occurrence: JP)
  Receive Date: 20140214
  Receipt Date: 20150620
  Transmission Date: 20150821
  Serious: Yes (Other)
  Sender: FDA-Public Use
  Company Number: JP-AMGEN-JPNSP2014010446

PATIENT
  Age: 63 Year
  Sex: Female
  Weight: 76.5 kg

DRUGS (5)
  1. GRANISETRON [Suspect]
     Active Substance: GRANISETRON
     Indication: METASTASES TO BONE
     Dosage: 3 MG, QMO
     Route: 065
     Dates: start: 20131015
  2. DEXART [Suspect]
     Active Substance: DEXAMETHASONE SODIUM PHOSPHATE
     Indication: METASTASES TO BONE
     Dosage: 6.6MG/TIMES, MONTHLY, ONCE A DAILY, FOUR COURSES
     Route: 065
     Dates: start: 20131015
  3. RANMARK [Suspect]
     Active Substance: DENOSUMAB
     Indication: METASTASES TO BONE
     Dosage: 120 MG, QD
     Route: 058
     Dates: start: 20121210
  4. NAVELBINE [Suspect]
     Active Substance: VINORELBINE TARTRATE
     Indication: METASTASES TO BONE
     Dosage: 25 MG, UNK
     Route: 065
     Dates: start: 20131015
  5. GEMZAR [Suspect]
     Active Substance: GEMCITABINE HYDROCHLORIDE
     Indication: METASTASES TO BONE
     Dosage: 1000 MG, UNK
     Route: 065
     Dates: start: 20131015

REACTIONS (1)
  - Osteonecrosis of jaw [Not Recovered/Not Resolved]

NARRATIVE: CASE EVENT DATE: 20131209
